FAERS Safety Report 8603092 (Version 2)
Quarter: 2012Q4

REPORT INFORMATION
  Report Type: Report from Study
  Country: SG (occurrence: SG)
  Receive Date: 20120607
  Receipt Date: 20120904
  Transmission Date: 20130627
  Serious: Yes (Hospitalization)
  Sender: FDA-Public Use
  Company Number: SG-ROCHE-1074393

PATIENT
  Age: 44 Year
  Sex: Male
  Weight: 76.3 kg

DRUGS (9)
  1. MABTHERA [Suspect]
     Indication: NON-HODGKIN^S LYMPHOMA
     Route: 042
     Dates: start: 20111102
  2. CYCLOPHOSPHAMIDE [Suspect]
     Indication: NON-HODGKIN^S LYMPHOMA
     Route: 042
     Dates: start: 20111102
  3. VINCRISTINE [Suspect]
     Indication: NON-HODGKIN^S LYMPHOMA
     Route: 042
     Dates: start: 20111102
  4. INOTUZUMAB OZOGAMICIN [Suspect]
     Indication: NON-HODGKIN^S LYMPHOMA
     Route: 042
     Dates: start: 20111103
  5. PREDNISONE [Suspect]
     Indication: NON-HODGKIN^S LYMPHOMA
     Route: 048
     Dates: start: 20111102
  6. MAGNESIUM CARBONATE [Concomitant]
     Route: 065
     Dates: start: 20120307
  7. CIPROFLOXACIN [Concomitant]
     Indication: INFECTION
     Route: 065
     Dates: start: 20120308, end: 20120314
  8. FAMOTIDINE [Concomitant]
     Indication: ABDOMINAL DISCOMFORT
     Route: 065
     Dates: start: 20120307
  9. BUTYLSCOPOLAMINE BROMIDE [Concomitant]
     Route: 065
     Dates: start: 20120307

REACTIONS (1)
  - Ileitis [Recovered/Resolved]
